FAERS Safety Report 13074258 (Version 5)
Quarter: 2017Q3

REPORT INFORMATION
  Report Type: Report from Study
  Country: US (occurrence: US)
  Receive Date: 20161230
  Receipt Date: 20170714
  Transmission Date: 20171127
  Serious: No
  Sender: FDA-Public Use
  Company Number: PHEH2016US033902

PATIENT
  Sex: Female
  Weight: 48.53 kg

DRUGS (4)
  1. EXTAVIA [Suspect]
     Active Substance: INTERFERON BETA-1B
     Dosage: WEEKS 5-6: 0.1875MG (0.75 ML), QOD
     Route: 058
  2. EXTAVIA [Suspect]
     Active Substance: INTERFERON BETA-1B
     Indication: MULTIPLE SCLEROSIS
     Dosage: WEEKS 1-2: 0.0625MG (0.25 ML), QOD
     Route: 058
     Dates: start: 20161019
  3. EXTAVIA [Suspect]
     Active Substance: INTERFERON BETA-1B
     Dosage: WEEKS 7+: 0.25 MG (1 ML), QOD
     Route: 058
  4. EXTAVIA [Suspect]
     Active Substance: INTERFERON BETA-1B
     Dosage: WEEKS 3-4: 0.125MG (0.5 ML), QOD
     Route: 058

REACTIONS (5)
  - Administration site reaction [Recovered/Resolved]
  - Erythema [Recovered/Resolved]
  - Device issue [Unknown]
  - Injection site bruising [Unknown]
  - Skin reaction [Not Recovered/Not Resolved]
